FAERS Safety Report 8423553-5 (Version None)
Quarter: 2012Q2

REPORT INFORMATION
  Report Type: 
  Country: None (occurrence: None)
  Receive Date: 20120608
  Receipt Date: 20120530
  Transmission Date: 20120825
  Serious: Yes (Other)
  Sender: FDA-Public Use
  Company Number: JP-VERTEX PHARMACEUTICALS INC.-AE-2012-008226

PATIENT
  Age: 62 Year
  Sex: Male

DRUGS (6)
  1. TELAVIC (TELAPREVIR) [Suspect]
     Indication: HEPATITIS C
     Route: 048
     Dates: start: 20120225
  2. REBETOL [Concomitant]
     Route: 048
     Dates: start: 20120225, end: 20120316
  3. PEG-INTRON [Concomitant]
     Route: 051
  4. REBETOL [Concomitant]
     Route: 048
     Dates: end: 20120420
  5. REBETOL [Concomitant]
     Route: 048
     Dates: start: 20120421
  6. REBETOL [Concomitant]
     Route: 048
     Dates: start: 20120317

REACTIONS (1)
  - RASH [None]
